FAERS Safety Report 10876380 (Version 1)
Quarter: 2015Q1

REPORT INFORMATION
  Report Type: Spontaneous
  Country: JP (occurrence: JP)
  Receive Date: 20150228
  Receipt Date: 20150228
  Transmission Date: 20150721
  Serious: Yes (Other)
  Sender: FDA-Public Use
  Company Number: JP-ACCORD-028935

PATIENT
  Age: 29 Year
  Sex: Female

DRUGS (3)
  1. VALPROIC ACID. [Suspect]
     Active Substance: VALPROIC ACID
     Indication: GENERALISED TONIC-CLONIC SEIZURE
     Dosage: STARTED FROM HOSPITAL DAY 3
  2. LEVETIRACETAM. [Suspect]
     Active Substance: LEVETIRACETAM
     Indication: GENERALISED TONIC-CLONIC SEIZURE
     Dosage: STARTED FROM HOSPITAL DAY 3
  3. PHENYTOIN. [Suspect]
     Active Substance: PHENYTOIN
     Indication: GENERALISED TONIC-CLONIC SEIZURE
     Dosage: TOTAL PHENYTOIN DOSE, 500 MG OVER 2 DAYS
     Route: 042

REACTIONS (2)
  - Generalised tonic-clonic seizure [None]
  - Rhabdomyolysis [Recovering/Resolving]
